FAERS Safety Report 4345391-5 (Version None)
Quarter: 2004Q2

REPORT INFORMATION
  Report Type: 
  Country: None (occurrence: None)
  Receive Date: 20040421
  Receipt Date: 20040420
  Transmission Date: 20050107
  Serious: Yes (Hospitalization)
  Sender: FDA-Public Use
  Company Number: 402525410

PATIENT
  Age: 65 Year
  Sex: Male

DRUGS (3)
  1. AK-FLUOR, 10%, AKORN [Suspect]
     Indication: ANGIOGRAM RETINA
     Dates: start: 20040329, end: 20040329
  2. NEOSYNEPHRINE CHIBRET EYE DROPS, NOS [Suspect]
     Dates: start: 20040329, end: 20040329
  3. MYDRIATICUM EYE DROP, NOS, UNK [Suspect]
     Dates: start: 20040329, end: 20040329

REACTIONS (8)
  - CHEST PAIN [None]
  - HYPERHIDROSIS [None]
  - HYPERTENSION [None]
  - INJECTION SITE PAIN [None]
  - NAUSEA [None]
  - PROCEDURAL COMPLICATION [None]
  - SKIN WARM [None]
  - TACHYCARDIA [None]
